FAERS Safety Report 10551083 (Version 1)
Quarter: 2014Q4

REPORT INFORMATION
  Report Type: Spontaneous
  Country: US (occurrence: None)
  Receive Date: 20141020
  Receipt Date: 20141020
  Transmission Date: 20150529
  Serious: No
  Sender: FDA-Public Use
  Company Number: AEGR000621

PATIENT
  Age: 67 Year
  Sex: Female

DRUGS (2)
  1. LISINOPRIL HCT (HYDROCHLOROTHIAZIDE, LISINOPRIL DIHYDRATE) [Concomitant]
  2. JUXTAPID [Suspect]
     Active Substance: LOMITAPIDE MESYLATE
     Indication: TYPE IIA HYPERLIPIDAEMIA
     Route: 048
     Dates: start: 20140630, end: 20140719

REACTIONS (2)
  - Myalgia [None]
  - Headache [None]

NARRATIVE: CASE EVENT DATE: 20140718
